FAERS Safety Report 4552100-3 (Version None)
Quarter: 2005Q1

REPORT INFORMATION
  Report Type: 
  Country: None (occurrence: None)
  Receive Date: 20050112
  Receipt Date: 20041222
  Transmission Date: 20050727
  Serious: No
  Sender: FDA-Public Use
  Company Number: USA041286820

PATIENT
  Age: 35 Year
  Sex: Female

DRUGS (1)
  1. STRATTERA [Suspect]
     Dosage: 60 MG DAY
     Dates: start: 20040101

REACTIONS (4)
  - ABDOMINAL PAIN UPPER [None]
  - HEPATIC HAEMORRHAGE [None]
  - HEPATIC MASS [None]
  - HEPATOCELLULAR DAMAGE [None]
